FAERS Safety Report 4293625-8 (Version None)
Quarter: 2004Q1

REPORT INFORMATION
  Report Type: 
  Country: None (occurrence: None)
  Receive Date: 20040210
  Receipt Date: 20040127
  Transmission Date: 20041129
  Serious: Yes (Hospitalization)
  Sender: FDA-Public Use
  Company Number: 02100-JPN-04-0020

PATIENT
  Age: 81 Year
  Sex: Male

DRUGS (2)
  1. CILOSTAZOL [Suspect]
     Dosage: 200 MG, ORAL
     Route: 048
  2. AMIODARONE HYDROCHLORIDE [Suspect]
     Dosage: ORAL
     Route: 048
     Dates: end: 20031201

REACTIONS (1)
  - INTERSTITIAL LUNG DISEASE [None]
